FAERS Safety Report 23985927 (Version 1)
Quarter: 2024Q2

REPORT INFORMATION
  Report Type: Report from Study
  Country: CA (occurrence: CA)
  Receive Date: 20240618
  Receipt Date: 20240618
  Transmission Date: 20240716
  Serious: Yes (Disabling, Other)
  Sender: FDA-Public Use
  Company Number: CA-PFIZER INC-202201029916

PATIENT
  Age: 73 Year
  Sex: Female

DRUGS (4)
  1. METHOTREXATE SODIUM [Suspect]
     Active Substance: METHOTREXATE SODIUM
     Dosage: 1 EVERY 1 WEEKS
     Route: 048
  2. METHOTREXATE SODIUM [Suspect]
     Active Substance: METHOTREXATE SODIUM
     Dosage: UNK, WEEKLY
  3. ERELZI [Suspect]
     Active Substance: ETANERCEPT-SZZS
     Indication: Rheumatoid arthritis
     Dosage: 50 MG (1 EVERY 1 WEEKS)
     Route: 058
  4. ERELZI [Suspect]
     Active Substance: ETANERCEPT-SZZS
     Indication: Rheumatoid arthritis
     Dosage: 50 MG (1 EVERY 1 WEEKS)
     Route: 058

REACTIONS (23)
  - Drug ineffective [Unknown]
  - Rhinorrhoea [Unknown]
  - Arthralgia [Unknown]
  - Gait disturbance [Unknown]
  - Illness [Unknown]
  - Pain in extremity [Unknown]
  - Back pain [Unknown]
  - Bronchitis [Unknown]
  - Cough [Unknown]
  - Dysphonia [Unknown]
  - Dyspnoea [Unknown]
  - Loss of personal independence in daily activities [Unknown]
  - Malaise [Unknown]
  - Musculoskeletal pain [Unknown]
  - Myalgia [Unknown]
  - Nasopharyngitis [Unknown]
  - Oropharyngeal pain [Unknown]
  - Pneumonia [Unknown]
  - Pyrexia [Unknown]
  - Sciatic nerve injury [Unknown]
  - Sneezing [Unknown]
  - Tremor [Unknown]
  - Product dose omission issue [Unknown]
